FAERS Safety Report 15841839 (Version 1)
Quarter: 2018Q4

REPORT INFORMATION
  Report Type: Spontaneous
  Country: US (occurrence: US)
  Receive Date: 20181221
  Receipt Date: 20181221
  Transmission Date: 20190205
  Serious: Yes (Hospitalization)
  Sender: FDA-Public Use
  Company Number: None

PATIENT
  Age: 61 Year
  Sex: Female

DRUGS (21)
  1. MONTELUKAST [Concomitant]
     Active Substance: MONTELUKAST SODIUM
  2. NEXIUM [Concomitant]
     Active Substance: ESOMEPRAZOLE MAGNESIUM
  3. DAILY VITE [Concomitant]
     Active Substance: VITAMINS
  4. PRELIEF [Concomitant]
     Active Substance: CALCIUM GLYCEROPHOSPHATE
  5. SUCRALFATE. [Concomitant]
     Active Substance: SUCRALFATE
  6. PROCHLORPER [Concomitant]
  7. METHYLPHENID [Concomitant]
     Active Substance: METHYLPHENIDATE
  8. ONDANSETRON [Concomitant]
     Active Substance: ONDANSETRON
  9. GLIPIZIDE. [Concomitant]
     Active Substance: GLIPIZIDE
  10. PREDINSONE [Concomitant]
  11. XYZAL [Concomitant]
     Active Substance: LEVOCETIRIZINE DIHYDROCHLORIDE
  12. FAMOTIDINE. [Concomitant]
     Active Substance: FAMOTIDINE
  13. ATORVASTATIN [Concomitant]
     Active Substance: ATORVASTATIN
  14. TYLENOL [Concomitant]
     Active Substance: ACETAMINOPHEN
  15. CAPECITABINE 500MG [Suspect]
     Active Substance: CAPECITABINE
     Indication: BREAST CANCER FEMALE
     Route: 048
     Dates: start: 20180821, end: 201811
  16. LEVOFLOXACIN. [Concomitant]
     Active Substance: LEVOFLOXACIN
  17. OXYCODONE AND ACETAMINOPHEN [Concomitant]
     Active Substance: ACETAMINOPHEN\OXYCODONE HYDROCHLORIDE
  18. IARTIA XT [Concomitant]
  19. IBUPROFEN. [Concomitant]
     Active Substance: IBUPROFEN
  20. LORAZEPAM. [Concomitant]
     Active Substance: LORAZEPAM
  21. TAMSULOSIN [Concomitant]
     Active Substance: TAMSULOSIN

REACTIONS (1)
  - Pneumonia [None]

NARRATIVE: CASE EVENT DATE: 20181203
